FAERS Safety Report 9062159 (Version 3)
Quarter: 2013Q2

REPORT INFORMATION
  Report Type: Spontaneous
  Country: DK (occurrence: DK)
  Receive Date: 20130127
  Receipt Date: 20130630
  Transmission Date: 20140414
  Serious: Yes (Hospitalization)
  Sender: FDA-Public Use
  Company Number: DK-TEVA-381372ISR

PATIENT
  Age: 65 Year
  Sex: Female

DRUGS (6)
  1. METHOTREXATE [Suspect]
     Indication: RHEUMATOID ARTHRITIS
     Route: 058
     Dates: start: 20080616, end: 20100217
  2. METHOTREXATE [Suspect]
     Route: 058
     Dates: start: 20100721, end: 20120217
  3. HUMIRA [Suspect]
     Indication: RHEUMATOID ARTHRITIS
     Dates: start: 20080225, end: 20120711
  4. HYDROXYCHLOROQUINE [Concomitant]
     Dates: start: 20081211, end: 20090602
  5. SALAZOPYRIN [Concomitant]
     Indication: RHEUMATOID ARTHRITIS
     Dates: start: 20081211, end: 20090602
  6. METHOTREXATE [Concomitant]
     Indication: RHEUMATOID ARTHRITIS
     Route: 048
     Dates: start: 20080225, end: 20080615

REACTIONS (5)
  - Dermatitis [Unknown]
  - Eczema infected [Recovered/Resolved]
  - Leukocytoclastic vasculitis [Unknown]
  - Pruritus [Unknown]
  - Skin plaque [Unknown]
